FAERS Safety Report 8236357 (Version 2)
Quarter: 2013Q1

REPORT INFORMATION
  Report Type: Report from Study
  Country: US (occurrence: US)
  Receive Date: 20111108
  Receipt Date: 20130205
  Transmission Date: 20140127
  Serious: Yes (Hospitalization, Other)
  Sender: FDA-Public Use
  Company Number: US-ACTELION-A-US2010-43155

PATIENT
  Age: 55 Year
  Sex: Female

DRUGS (2)
  1. TRACLEER [Suspect]
     Indication: PULMONARY ARTERIAL HYPERTENSION
     Dosage: UNK
     Route: 048
     Dates: start: 20090923
  2. COUMADIN [Concomitant]

REACTIONS (9)
  - Heart valve incompetence [Unknown]
  - Cardiac operation [Unknown]
  - Tooth abscess [Unknown]
  - Fluid retention [Unknown]
  - Atrial fibrillation [Recovered/Resolved]
  - Cardiac failure congestive [Recovering/Resolving]
  - Chest pain [Recovered/Resolved]
  - Dyspnoea [Recovering/Resolving]
  - International normalised ratio increased [Recovered/Resolved]
